FAERS Safety Report 6486174-X (Version None)
Quarter: 2009Q4

REPORT INFORMATION
  Report Type: 
  Country: None (occurrence: None)
  Receive Date: 20091207
  Receipt Date: 20091120
  Transmission Date: 20100525
  Serious: Yes (Hospitalization)
  Sender: FDA-Public Use
  Company Number: 2009003575

PATIENT
  Sex: Male
  Weight: 90 kg

DRUGS (2)
  1. ERLOTINIB HYDROCHLORIDE [Suspect]
     Indication: ADENOCARCINOMA PANCREAS
     Dosage: (100 MG,QD),ORAL
     Route: 048
     Dates: start: 20091102
  2. GEMCITABINE HYDROCHLORIDE (GEMCITABINE HYDROCHLORIDE)(INJECTION FOR IN [Suspect]
     Indication: ADENOCARCINOMA PANCREAS
     Dosage: (1000 MG/M2,DAYS 1, 8 AND 15), INTRAVENOUS
     Route: 042
     Dates: start: 20091102

REACTIONS (10)
  - COUGH [None]
  - DEHYDRATION [None]
  - DYSPNOEA [None]
  - FATIGUE [None]
  - GENERALISED OEDEMA [None]
  - MYALGIA [None]
  - NAUSEA [None]
  - OEDEMA PERIPHERAL [None]
  - RASH [None]
  - STOMATITIS [None]
